FAERS Safety Report 17220159 (Version 3)
Quarter: 2020Q1

REPORT INFORMATION
  Report Type: Report from Study
  Country: RU (occurrence: RU)
  Receive Date: 20191231
  Receipt Date: 20200128
  Transmission Date: 20200409
  Serious: Yes (Other)
  Sender: FDA-Public Use
  Company Number: RU-NOVOPROD-703805

PATIENT
  Age: 59 Year
  Sex: Male
  Weight: 80 kg

DRUGS (7)
  1. SEMAGLUTIDE B 3.0 MG/ML PDS290 [Suspect]
     Active Substance: SEMAGLUTIDE
     Indication: OBESITY
     Dosage: 2.4,MG,ONCE PER WEEK
     Route: 058
     Dates: start: 20190718, end: 20191219
  2. ACETYLSALICYLIC ACID [Concomitant]
     Active Substance: ASPIRIN
     Dosage: UNK
     Dates: start: 20180212
  3. PERINDOPRIL [Concomitant]
     Active Substance: PERINDOPRIL
     Dosage: 2.0,MG,
     Dates: start: 20180212
  4. AMLODIPINE [Concomitant]
     Active Substance: AMLODIPINE BESYLATE
     Dosage: UNK
     Dates: start: 20180529
  5. SEMAGLUTIDE B 3.0 MG/ML PDS290 [Suspect]
     Active Substance: SEMAGLUTIDE
     Dosage: 1.7 MG, QW
     Route: 058
     Dates: start: 20200118
  6. ATORVASTATIN [Concomitant]
     Active Substance: ATORVASTATIN
     Dosage: UNK
     Dates: start: 20180212, end: 20191225
  7. METOPROLOL. [Concomitant]
     Active Substance: METOPROLOL
     Dosage: UNK
     Dates: start: 20180212

REACTIONS (1)
  - Alcoholic liver disease [Recovered/Resolved]

NARRATIVE: CASE EVENT DATE: 20191217
